FAERS Safety Report 25872346 (Version 1)
Quarter: 2025Q4

REPORT INFORMATION
  Report Type: Report from Study
  Country: CN (occurrence: CN)
  Receive Date: 20251002
  Receipt Date: 20251002
  Transmission Date: 20260117
  Serious: Yes (Other)
  Sender: ABBVIE
  Company Number: CN-ABBVIE-6479947

PATIENT

DRUGS (1)
  1. BOTOX [Suspect]
     Active Substance: ONABOTULINUMTOXINA
     Indication: Muscle hypertrophy
     Dosage: TIME INTERVAL: AS NECESSARY
     Route: 065
     Dates: start: 20250923, end: 20250923

REACTIONS (5)
  - Botulism [Unknown]
  - Back pain [Recovered/Resolved]
  - Neck pain [Not Recovered/Not Resolved]
  - Heart rate increased [Recovered/Resolved]
  - Pain [Not Recovered/Not Resolved]

NARRATIVE: CASE EVENT DATE: 20250901
